FAERS Safety Report 4617974-6 (Version None)
Quarter: 2005Q1

REPORT INFORMATION
  Report Type: 
  Country: None (occurrence: None)
  Receive Date: 20050322
  Receipt Date: 20050314
  Transmission Date: 20050727
  Serious: Yes (Other)
  Sender: FDA-Public Use
  Company Number: 200511055BCC

PATIENT
  Sex: Male
  Weight: 90.7194 kg

DRUGS (1)
  1. ASPIRIN [Suspect]
     Dosage: 650, MG, HS, ORAL
     Route: 048
     Dates: end: 20041201

REACTIONS (1)
  - RETINAL DETACHMENT [None]
